FAERS Safety Report 6199737-6 (Version None)
Quarter: 2009Q2

REPORT INFORMATION
  Report Type: 
  Country: None (occurrence: None)
  Receive Date: 20090520
  Receipt Date: 20090520
  Transmission Date: 20091009
  Serious: Yes (Death)
  Sender: FDA-Public Use
  Company Number: None

PATIENT
  Age: 68 Year
  Sex: Male
  Weight: 81.6475 kg

DRUGS (1)
  1. DIGOXIN [Suspect]
     Indication: ARRHYTHMIA
     Dosage: 1 TABLET 1 TIME A DAY
     Dates: start: 19940104, end: 20081023

REACTIONS (4)
  - CARDIAC FAILURE [None]
  - PERICARDIAL EFFUSION [None]
  - PRODUCT QUALITY ISSUE [None]
  - PULMONARY OEDEMA [None]
